FAERS Safety Report 9885119 (Version 1)
Quarter: 2014Q1

REPORT INFORMATION
  Report Type: Spontaneous
  Country: CA (occurrence: CA)
  Receive Date: 20140210
  Receipt Date: 20140210
  Transmission Date: 20141002
  Serious: Yes (Hospitalization)
  Sender: FDA-Public Use
  Company Number: CA-AMGEN-CANSP2014008500

PATIENT
  Age: 76 Year
  Sex: Male

DRUGS (14)
  1. ENBREL [Suspect]
     Indication: RHEUMATOID ARTHRITIS
     Dosage: 50 MG, UNK
     Route: 065
     Dates: start: 20130607
  2. GABAPENTIN [Concomitant]
     Dosage: 300 MG, 2 TID
  3. GLICLAZIDE [Concomitant]
     Dosage: 30 MG, DAILY
  4. HYDROMORPH CONTIN [Concomitant]
     Dosage: 24 MG, BID
  5. HYDROXYZINE [Concomitant]
     Dosage: 25 MG, AT BED TIME
  6. TECTA [Concomitant]
     Dosage: 40 MG, ONCE AM
  7. SYNTHROID [Concomitant]
     Dosage: 0.1 MG, DAILY
  8. TEMAZEPAM [Concomitant]
     Dosage: 30 MG, AT BEDTIME
  9. METFORMIN [Concomitant]
     Dosage: 500 MG, BID
  10. METHOTREXATE [Concomitant]
     Dosage: 2.5 MG 5 TABLETS ONCE A WEEK
  11. CALCIUM [Concomitant]
     Dosage: 650 MG, BID
  12. CENTRUM SELECT [Concomitant]
     Dosage: UNK UNK, ONCE DAILY
  13. VITAMIN D                          /00107901/ [Concomitant]
     Dosage: 1000 UNIT, DAILY
  14. PREDNISONE [Concomitant]
     Dosage: HALF A TABLET OF 5MG DAILY

REACTIONS (5)
  - Haemoptysis [Not Recovered/Not Resolved]
  - Oxygen saturation decreased [Not Recovered/Not Resolved]
  - Asthenia [Not Recovered/Not Resolved]
  - Pneumonia [Not Recovered/Not Resolved]
  - Rheumatoid arthritis [Not Recovered/Not Resolved]
